FAERS Safety Report 10131637 (Version 1)
Quarter: 2014Q2

REPORT INFORMATION
  Report Type: Spontaneous
  Country: US (occurrence: US)
  Receive Date: 20140428
  Receipt Date: 20140428
  Transmission Date: 20141212
  Serious: Yes (Other)
  Sender: FDA-Public Use
  Company Number: US-PFIZER INC-2014113616

PATIENT
  Age: 67 Year
  Sex: Male
  Weight: 115.6 kg

DRUGS (9)
  1. NARDIL [Suspect]
     Indication: DEPRESSION
     Dosage: 15 MG, 4X/DAY
  2. NARDIL [Suspect]
     Indication: ANXIETY
  3. VIAGRA [Suspect]
     Indication: ERECTILE DYSFUNCTION
     Dosage: 100 MG, AS NEEDED
  4. GLIPIZIDE [Suspect]
     Indication: DIABETES MELLITUS
     Dosage: 10 MG, 2X/DAY
  5. LOSARTAN [Suspect]
     Indication: HYPERTENSION
     Dosage: 100 MG, 1X/DAY
  6. LEVOTHYROXINE SODIUM [Suspect]
     Indication: HYPOTHYROIDISM
     Dosage: UNK
  7. TAMSULOSIN HYDROCHLORIDE [Suspect]
     Indication: BENIGN PROSTATIC HYPERPLASIA
     Dosage: 0.4 MG, 2X/DAY
  8. PROCARDIA [Suspect]
     Indication: HYPERLIPIDAEMIA
     Dosage: 10 MG, 1X/DAY
  9. METFORMIN HCL [Suspect]
     Indication: DIABETES MELLITUS
     Dosage: 2000 MG, 2X/DAY

REACTIONS (1)
  - Large intestine polyp [Unknown]
